FAERS Safety Report 23258471 (Version 1)
Quarter: 2023Q4

REPORT INFORMATION
  Report Type: Spontaneous
  Country: US (occurrence: None)
  Receive Date: 20231201
  Receipt Date: 20231201
  Transmission Date: 20240110
  Serious: Yes (Other)
  Sender: FDA-Public Use
  Company Number: None

PATIENT
  Age: 57 Year
  Sex: Male
  Weight: 90 kg

DRUGS (1)
  1. CABENUVA [Suspect]
     Active Substance: CABOTEGRAVIR\RILPIVIRINE
     Indication: HIV infection
     Dosage: OTHER FREQUENCY : Q4 WEEKS OR Q 8;?
     Route: 030

REACTIONS (3)
  - Injection site swelling [None]
  - Erythema [None]
  - Pain [None]

NARRATIVE: CASE EVENT DATE: 20231128
